FAERS Safety Report 9871348 (Version 1)
Quarter: 2014Q1

REPORT INFORMATION
  Report Type: Spontaneous
  Country: US (occurrence: US)
  Receive Date: 20140205
  Receipt Date: 20140205
  Transmission Date: 20141002
  Serious: Yes (Hospitalization)
  Sender: FDA-Public Use
  Company Number: PHHY2014US012969

PATIENT
  Age: 26 Year
  Sex: Male

DRUGS (2)
  1. CLOZAPINE [Suspect]
     Indication: SCHIZOPHRENIA, PARANOID TYPE
  2. ANTIBIOTICS [Concomitant]

REACTIONS (16)
  - Mental status changes [Unknown]
  - Intestinal perforation [Unknown]
  - Colonic pseudo-obstruction [Unknown]
  - Pyrexia [Unknown]
  - Abdominal distension [Unknown]
  - Abdominal rigidity [Unknown]
  - Intestinal dilatation [Unknown]
  - Inflammation [Unknown]
  - Intestinal ischaemia [Unknown]
  - Intestinal ulcer [Unknown]
  - Blood creatine phosphokinase increased [Unknown]
  - Lipase increased [Unknown]
  - Hypotension [Recovering/Resolving]
  - Heart rate increased [Unknown]
  - Aspartate aminotransferase increased [Unknown]
  - Alanine aminotransferase increased [Unknown]
